FAERS Safety Report 5642588-9 (Version None)
Quarter: 2008Q1

REPORT INFORMATION
  Report Type: 
  Country: None (occurrence: None)
  Receive Date: 20080228
  Receipt Date: 20080225
  Transmission Date: 20080703
  Serious: Yes (Other)
  Sender: FDA-Public Use
  Company Number: ES-BRISTOL-MYERS SQUIBB COMPANY-14056261

PATIENT
  Age: 77 Year
  Sex: Female

DRUGS (2)
  1. DOXORUBICIN HCL [Suspect]
     Indication: BREAST CANCER
     Dosage: 50MG,DAY 1
     Route: 042
     Dates: start: 20071009, end: 20071009
  2. TAXOL [Suspect]
     Indication: BREAST CANCER
     Dosage: 300MG,DAY 1
     Route: 042
     Dates: start: 20071009, end: 20071009

REACTIONS (1)
  - TRANSAMINASES INCREASED [None]
